FAERS Safety Report 17464370 (Version 1)
Quarter: 2020Q1

REPORT INFORMATION
  Report Type: Spontaneous
  Country: DE (occurrence: DE)
  Receive Date: 20200226
  Receipt Date: 20200226
  Transmission Date: 20200409
  Serious: Yes (Other)
  Sender: FDA-Public Use
  Company Number: DE-ANIPHARMA-2020-DE-000029

PATIENT
  Sex: Female

DRUGS (1)
  1. ATACAND [Suspect]
     Active Substance: CANDESARTAN CILEXETIL
     Indication: PRODUCT USED FOR UNKNOWN INDICATION
     Dosage: 16 MG DAILY / CHANGED TO ATACAND PROTECT 1/2 OF 32 MG TABLET = 16 MG DAILY
     Route: 048

REACTIONS (4)
  - Back pain [Unknown]
  - Bone pain [Unknown]
  - Osteoporosis [Unknown]
  - Nightmare [Unknown]
